FAERS Safety Report 11825623 (Version 1)
Quarter: 2015Q4

REPORT INFORMATION
  Report Type: Spontaneous
  Country: RO (occurrence: RO)
  Receive Date: 20151211
  Receipt Date: 20151211
  Transmission Date: 20160305
  Serious: Yes (Hospitalization, Other)
  Sender: FDA-Public Use
  Company Number: RO-SUN PHARMACEUTICAL INDUSTRIES LTD-2015RR-107572

PATIENT

DRUGS (1)
  1. VENLAFAXINE [Suspect]
     Active Substance: VENLAFAXINE HYDROCHLORIDE
     Indication: PRODUCT USED FOR UNKNOWN INDICATION
     Dosage: 7.5 G, SINGLE (100 TABLETS X 75 MG)
     Route: 048

REACTIONS (7)
  - Rhabdomyolysis [Recovered/Resolved]
  - Intentional overdose [Unknown]
  - Hepatocellular injury [Recovered/Resolved]
  - Suicide attempt [Unknown]
  - Toxicity to various agents [Recovering/Resolving]
  - Coma [Recovered/Resolved]
  - Pneumonia aspiration [Recovered/Resolved]
